FAERS Safety Report 4300034-1 (Version None)
Quarter: 2004Q1

REPORT INFORMATION
  Report Type: 
  Country: None (occurrence: None)
  Receive Date: 20040220
  Receipt Date: 20040213
  Transmission Date: 20041129
  Serious: Yes (Death)
  Sender: FDA-Public Use
  Company Number: PHNU2004DE00926

PATIENT
  Age: 85 Year
  Sex: Male

DRUGS (1)
  1. EXELON [Suspect]
     Indication: CEREBRAL ATHEROSCLEROSIS
     Route: 048

REACTIONS (1)
  - PANCREATIC CARCINOMA [None]
